FAERS Safety Report 21736850 (Version 2)
Quarter: 2023Q1

REPORT INFORMATION
  Report Type: Other
  Country: IN (occurrence: IN)
  Receive Date: 20221216
  Receipt Date: 20230119
  Transmission Date: 20230418
  Serious: Yes (Other)
  Sender: FDA-Public Use
  Company Number: IN-ALVOGEN-2022088826

PATIENT
  Age: 36 Year
  Sex: Female

DRUGS (7)
  1. DOXORUBICIN [Suspect]
     Active Substance: DOXORUBICIN
     Indication: Plasmablastic lymphoma
     Dosage: DOSE-ADJUSTED
  2. ETOPOSIDE [Suspect]
     Active Substance: ETOPOSIDE
     Indication: Plasmablastic lymphoma
     Dosage: DOSE-ADJUSTED
  3. PREDNISONE [Suspect]
     Active Substance: PREDNISONE
     Indication: Plasmablastic lymphoma
     Dosage: DOSE-ADJUSTED
  4. VINCRISTINE [Suspect]
     Active Substance: VINCRISTINE
     Indication: Plasmablastic lymphoma
     Dosage: DOSE-ADJUSTED
  5. CYCLOPHOSPHAMIDE [Suspect]
     Active Substance: CYCLOPHOSPHAMIDE
     Indication: Plasmablastic lymphoma
     Dosage: DOSE-ADJUSTED
  6. RADIATION THERAPY [Suspect]
     Active Substance: RADIATION THERAPY
     Indication: Plasmablastic lymphoma
     Dosage: AT 36 GY/20 CYCLES TO THE ?WALDEYER?S RING  AND  THE  NECK  REGION  BILATERALLY.
  7. METHOTREXATE [Concomitant]
     Active Substance: METHOTREXATE
     Indication: Product used for unknown indication

REACTIONS (7)
  - Cytopenia [Unknown]
  - Ileus paralytic [Not Recovered/Not Resolved]
  - Febrile neutropenia [Recovered/Resolved]
  - Hypothyroidism [Not Recovered/Not Resolved]
  - Thrombocytopenia [Recovered/Resolved]
  - Mouth ulceration [Not Recovered/Not Resolved]
  - Dermatitis [Not Recovered/Not Resolved]
